FAERS Safety Report 6323586-9 (Version None)
Quarter: 2009Q3

REPORT INFORMATION
  Report Type: 
  Country: None (occurrence: None)
  Receive Date: 20090820
  Receipt Date: 20090807
  Transmission Date: 20100115
  Serious: Yes (Death, Hospitalization)
  Sender: FDA-Public Use
  Company Number: 2009AL001346

PATIENT
  Age: 79 Year
  Sex: Male

DRUGS (32)
  1. DIGOXIN [Suspect]
     Dosage: PO
     Route: 048
     Dates: start: 20050101, end: 20061001
  2. ASPIRIN [Concomitant]
  3. LANTUS [Concomitant]
  4. CALCIUM [Concomitant]
  5. NEPRHO-VITE [Concomitant]
  6. COREG [Concomitant]
  7. ATORVASTATIN [Concomitant]
  8. TYLENOL (CAPLET) [Concomitant]
  9. COUMADIN [Concomitant]
  10. LISPRO [Concomitant]
  11. METOPROLOL [Concomitant]
  12. KEFLEX [Concomitant]
  13. IRON SULFATETHIAMIN COMPOUND TAB [Concomitant]
  14. COLACE [Concomitant]
  15. PROTONIX [Concomitant]
  16. SODIUM BICARBONATE IN PLASTIC CONTAINER [Concomitant]
  17. RENAGEL [Concomitant]
  18. PLAVIX [Concomitant]
  19. NITROGLYCERIN [Concomitant]
  20. RISPERDAL [Concomitant]
  21. LASIX [Concomitant]
  22. ENALAPRIL MALEATE [Concomitant]
  23. PERCOCET [Concomitant]
  24. CARVEDILOL [Concomitant]
  25. LEVAQUIN [Concomitant]
  26. PRILOSEC [Concomitant]
  27. VANCOMYCIN [Concomitant]
  28. FLORASTOR [Concomitant]
  29. DOXYCYCLINE [Concomitant]
  30. FLAGYL [Concomitant]
  31. CODEINE [Concomitant]
  32. AMBIEN [Concomitant]

REACTIONS (14)
  - ACIDOSIS [None]
  - ANAEMIA [None]
  - ATRIAL FIBRILLATION [None]
  - BACK PAIN [None]
  - CARDIAC FAILURE CONGESTIVE [None]
  - CELLULITIS [None]
  - HYPOTENSION [None]
  - ISCHAEMIC CARDIOMYOPATHY [None]
  - OVERDOSE [None]
  - RENAL FAILURE [None]
  - RENAL FAILURE CHRONIC [None]
  - RIGHT VENTRICULAR HYPERTROPHY [None]
  - STRESS ULCER [None]
  - THERAPEUTIC AGENT TOXICITY [None]
